FAERS Safety Report 16475937 (Version 1)
Quarter: 2019Q2

REPORT INFORMATION
  Report Type: Report from Study
  Country: GR (occurrence: GR)
  Receive Date: 20190625
  Receipt Date: 20190625
  Transmission Date: 20190711
  Serious: Yes (Hospitalization, Disabling, Other)
  Sender: FDA-Public Use
  Company Number: GR-ELI_LILLY_AND_COMPANY-GR201903014606

PATIENT
  Age: 83 Year
  Sex: Male

DRUGS (12)
  1. TERIPARATIDE [Suspect]
     Active Substance: TERIPARATIDE
     Dosage: 20 UG, UNKNOWN
     Route: 058
  2. GREPID [Concomitant]
     Active Substance: CLOPIDOGREL BESILATE
     Indication: HEART RATE DECREASED
  3. FERRELUC [Concomitant]
     Indication: BLOOD IRON DECREASED
  4. GREPID [Concomitant]
     Active Substance: CLOPIDOGREL BESILATE
     Indication: BLOOD PRESSURE DIASTOLIC DECREASED
     Dosage: UNK
     Route: 048
  5. XATRAL [ALFUZOSIN HYDROCHLORIDE] [Concomitant]
     Active Substance: ALFUZOSIN
     Indication: PROSTATE INDURATION
     Dosage: UNK
     Route: 048
  6. GREPID [Concomitant]
     Active Substance: CLOPIDOGREL BESILATE
     Indication: MYOCARDIAL INFARCTION
  7. FERRELUC [Concomitant]
     Indication: HAEMATOCRIT DECREASED
     Dosage: UNK
     Route: 048
  8. PRAVALIP [PRAVASTATIN SODIUM] [Concomitant]
     Indication: PRODUCT USED FOR UNKNOWN INDICATION
     Dosage: UNK
     Route: 048
  9. CALCIUM [Concomitant]
     Active Substance: CALCIUM
     Indication: OSTEOPOROSIS
     Dosage: UNK
     Route: 048
  10. TERIPARATIDE [Suspect]
     Active Substance: TERIPARATIDE
     Indication: OSTEOPOROSIS
     Dosage: 20 UG, DAILY
     Route: 058
     Dates: start: 20190220
  11. PANTIUM [PACLITAXEL] [Concomitant]
     Indication: GASTROINTESTINAL DISORDER
     Dosage: UNK
     Route: 048
  12. FERRELUC [Concomitant]
     Indication: SERUM FERRITIN DECREASED

REACTIONS (8)
  - Speech disorder [Not Recovered/Not Resolved]
  - Subarachnoid haemorrhage [Not Recovered/Not Resolved]
  - Fall [Not Recovered/Not Resolved]
  - Face injury [Not Recovered/Not Resolved]
  - Blood pressure decreased [Recovering/Resolving]
  - Delusion [Recovered/Resolved]
  - Head injury [Not Recovered/Not Resolved]
  - Cerebrovascular accident [Unknown]

NARRATIVE: CASE EVENT DATE: 20190325
